FAERS Safety Report 7739591-1 (Version None)
Quarter: 2011Q3

REPORT INFORMATION
  Report Type: 
  Country: None (occurrence: None)
  Receive Date: 20110909
  Receipt Date: 20110107
  Transmission Date: 20111222
  Serious: No
  Sender: FDA-Public Use
  Company Number: US-BAYER-2011-002482

PATIENT
  Age: 23 Year
  Sex: Female

DRUGS (1)
  1. MIRENA [Suspect]
     Indication: CONTRACEPTION
     Dosage: UNK
     Dates: start: 20091101

REACTIONS (5)
  - ADVERSE DRUG REACTION [None]
  - NERVE COMPRESSION [None]
  - BACK PAIN [None]
  - DYSPNOEA [None]
  - INSOMNIA [None]
